FAERS Safety Report 7079667-8 (Version None)
Quarter: 2010Q4

REPORT INFORMATION
  Report Type: 
  Country: None (occurrence: None)
  Receive Date: 20101102
  Receipt Date: 20101021
  Transmission Date: 20110411
  Serious: Yes (Hospitalization)
  Sender: FDA-Public Use
  Company Number: PHHY2010AU71263

PATIENT
  Sex: Male

DRUGS (5)
  1. CLOZARIL [Suspect]
     Indication: SCHIZOPHRENIA, PARANOID TYPE
     Dosage: UNK
     Dates: end: 20100801
  2. OLANZAPINE [Concomitant]
     Dosage: 10 MG MANE AND 30 MG NOCTE
  3. AMISULPRIDE [Concomitant]
     Dosage: 300 MG, BID
  4. DIAZEPAM [Concomitant]
     Dosage: 10 MG, BID
  5. BENZTROPINE MESYLATE [Concomitant]
     Dosage: 01 MG, BID

REACTIONS (17)
  - BLOOD ALKALINE PHOSPHATASE INCREASED [None]
  - BLOOD CHOLESTEROL INCREASED [None]
  - BLOOD CREATININE DECREASED [None]
  - BLOOD TRIGLYCERIDES INCREASED [None]
  - BLOOD UREA DECREASED [None]
  - C-REACTIVE PROTEIN INCREASED [None]
  - CHOLECYSTECTOMY [None]
  - ELECTROCARDIOGRAM ST SEGMENT ELEVATION [None]
  - GAMMA-GLUTAMYLTRANSFERASE INCREASED [None]
  - HIGH DENSITY LIPOPROTEIN DECREASED [None]
  - HYPOKINESIA [None]
  - LEFT VENTRICULAR HYPERTROPHY [None]
  - LOW DENSITY LIPOPROTEIN INCREASED [None]
  - PERITONITIS [None]
  - PNEUMONIA [None]
  - POST CHOLECYSTECTOMY SYNDROME [None]
  - TROPONIN I INCREASED [None]
